FAERS Safety Report 7269784-1 (Version None)
Quarter: 2011Q1

REPORT INFORMATION
  Report Type: 
  Country: None (occurrence: None)
  Receive Date: 20110124
  Receipt Date: 20110111
  Transmission Date: 20110831
  Serious: Yes (Death, Life-Threatening, Hospitalization)
  Sender: FDA-Public Use
  Company Number: 2010AC000435

PATIENT
  Age: 83 Year
  Sex: Female
  Weight: 77.1115 kg

DRUGS (19)
  1. LIPITOR [Concomitant]
  2. DIGOXIN [Suspect]
     Dosage: 0.125 MG;QD;PO
     Route: 048
     Dates: start: 20071102, end: 20080426
  3. ACTONEL [Concomitant]
  4. TRIAMTERENE AND HYDROCHLOROTHIAZIDE [Concomitant]
  5. QUINAPRIL [Concomitant]
  6. SYNTHROID [Concomitant]
  7. MULTI-VITAMINS [Concomitant]
  8. ASPIRIN [Concomitant]
  9. DIGOXIN [Suspect]
     Dosage: PO
     Route: 048
     Dates: start: 20080305
  10. AYENOLOL [Concomitant]
  11. CALCIUM [Concomitant]
  12. POTASSIUM [Concomitant]
  13. LEVAQUIN [Concomitant]
  14. HEPARIN [Concomitant]
  15. DIGOXIN [Suspect]
     Indication: ARRHYTHMIA
     Dosage: 0.125 MG;QD;PO
     Route: 048
     Dates: start: 20070105, end: 20070201
  16. DEBROX [Concomitant]
  17. VANCOMYCIN [Concomitant]
  18. MORPHINE [Concomitant]
  19. ATIVAN [Concomitant]

REACTIONS (30)
  - FAECAL INCONTINENCE [None]
  - FALL [None]
  - INJURY [None]
  - JOINT SPRAIN [None]
  - CARDIOACTIVE DRUG LEVEL BELOW THERAPEUTIC [None]
  - BLOOD CULTURE POSITIVE [None]
  - CARDIAC ENZYMES INCREASED [None]
  - THROMBOCYTOPENIA [None]
  - CARDIO-RESPIRATORY ARREST [None]
  - STAPHYLOCOCCAL INFECTION [None]
  - RENAL FAILURE CHRONIC [None]
  - BACK PAIN [None]
  - MEMORY IMPAIRMENT [None]
  - SEPSIS [None]
  - ACUTE MYOCARDIAL INFARCTION [None]
  - ECONOMIC PROBLEM [None]
  - BLOOD POTASSIUM INCREASED [None]
  - BLOOD SODIUM INCREASED [None]
  - CONTUSION [None]
  - ELECTROCARDIOGRAM ST-T CHANGE [None]
  - BLOOD SODIUM [None]
  - ATRIAL FIBRILLATION [None]
  - URINARY INCONTINENCE [None]
  - CEREBRAL INFARCTION [None]
  - APHASIA [None]
  - BACTERAEMIA [None]
  - OSTEOPOROSIS [None]
  - UNRESPONSIVE TO STIMULI [None]
  - HYPOCALCAEMIA [None]
  - HAEMATURIA [None]
